FAERS Safety Report 10337862 (Version 1)
Quarter: 2014Q3

REPORT INFORMATION
  Report Type: Spontaneous
  Country: CN (occurrence: None)
  Receive Date: 20140722
  Receipt Date: 20140722
  Transmission Date: 20150326
  Serious: Yes (Death)
  Sender: FDA-Public Use
  Company Number: 2014CVI00018

PATIENT
  Age: 66 Year
  Sex: Female
  Weight: 70.7 kg

DRUGS (4)
  1. CHINESE MEDICATION INJECTION (CHINESE MEDICATION) [Suspect]
     Active Substance: UNSPECIFIED INGREDIENT
     Indication: ILL-DEFINED DISORDER
  2. DOXOFYLLINE INJECTION (DOXOFYLLINE INJECTION) [Suspect]
     Active Substance: DOXOFYLLINE
     Indication: ILL-DEFINED DISORDER
  3. CEFUROXIME (CEFUROXIME)UNKNOWN [Suspect]
     Active Substance: CEFUROXIME
     Indication: LUNG INFECTION
     Route: 042
     Dates: start: 20140106, end: 20140107
  4. TANREQING INJECTION (TCM) [Concomitant]

REACTIONS (16)
  - Cardiac arrest [None]
  - Pallor [None]
  - Foaming at mouth [None]
  - Prothrombin time prolonged [None]
  - Blood bilirubin increased [None]
  - Blood chloride decreased [None]
  - Alanine aminotransferase increased [None]
  - Aspartate aminotransferase increased [None]
  - Red blood cell count decreased [None]
  - Blood calcium decreased [None]
  - Blood sodium decreased [None]
  - Dyspnoea [None]
  - Heart rate decreased [None]
  - White blood cell count increased [None]
  - Blood pH decreased [None]
  - Activated partial thromboplastin time prolonged [None]

NARRATIVE: CASE EVENT DATE: 20140107
